FAERS Safety Report 5677371-1 (Version None)
Quarter: 2008Q1

REPORT INFORMATION
  Report Type: 
  Country: None (occurrence: None)
  Receive Date: 20080324
  Receipt Date: 20080309
  Transmission Date: 20080703
  Serious: Yes (Hospitalization)
  Sender: FDA-Public Use
  Company Number: AU-BAUSCH-2008BL001069

PATIENT
  Age: 78 Year
  Sex: Male

DRUGS (4)
  1. BRIMONIDINE TARTRATE [Suspect]
     Indication: GLAUCOMA
     Route: 047
     Dates: start: 20030101, end: 20050101
  2. LATANOPROST [Concomitant]
     Indication: GLAUCOMA
     Route: 047
     Dates: start: 19970101
  3. TIMOLOL MALEATE [Concomitant]
     Indication: GLAUCOMA
     Route: 047
  4. COSOPT [Concomitant]
     Indication: GLAUCOMA
     Route: 047
     Dates: start: 20030101

REACTIONS (2)
  - GIANT PAPILLARY CONJUNCTIVITIS [None]
  - UVEITIS [None]
